FAERS Safety Report 17187890 (Version 2)
Quarter: 2020Q1

REPORT INFORMATION
  Report Type: Spontaneous
  Country: US (occurrence: US)
  Receive Date: 20191221
  Receipt Date: 20200103
  Transmission Date: 20200409
  Serious: Yes (Other)
  Sender: FDA-Public Use
  Company Number: US-AMGEN-USASP2019210192

PATIENT
  Age: 69 Year
  Sex: Female
  Weight: 134.69 kg

DRUGS (5)
  1. CYCLOPHOSPHAMIDE. [Concomitant]
     Active Substance: CYCLOPHOSPHAMIDE
     Dosage: 1362 UNK
     Route: 065
  2. NEULASTA [Suspect]
     Active Substance: PEGFILGRASTIM
     Indication: PRODUCT USED FOR UNKNOWN INDICATION
     Dosage: 6 MILLIGRAM
     Route: 065
  3. PALONOSETRON HCL [Concomitant]
     Active Substance: PALONOSETRON HYDROCHLORIDE
     Dosage: 0.25 UNK
  4. DOXORUBICIN HCL [Concomitant]
     Active Substance: DOXORUBICIN HYDROCHLORIDE
     Dosage: 136 UNK
     Route: 065
  5. DEXAMETHASONE SODIUM PHOSPHATE. [Concomitant]
     Active Substance: DEXAMETHASONE SODIUM PHOSPHATE
     Dosage: 10 UNK

REACTIONS (2)
  - Therapeutic product effect incomplete [Unknown]
  - Neutropenia [Recovered/Resolved]

NARRATIVE: CASE EVENT DATE: 20191212
